FAERS Safety Report 6921478-5 (Version None)
Quarter: 2010Q3

REPORT INFORMATION
  Report Type: 
  Country: None (occurrence: None)
  Receive Date: 20100812
  Receipt Date: 20090421
  Transmission Date: 20110219
  Serious: No
  Sender: FDA-Public Use
  Company Number: A0779804A

PATIENT
  Sex: Female

DRUGS (1)
  1. TAGAMET HB 200 [Suspect]
     Route: 048
     Dates: start: 20080101

REACTIONS (2)
  - PARAESTHESIA [None]
  - PRURITUS [None]
